FAERS Safety Report 13914717 (Version 1)
Quarter: 2017Q3

REPORT INFORMATION
  Report Type: Spontaneous
  Country: US (occurrence: US)
  Receive Date: 20170829
  Receipt Date: 20170829
  Transmission Date: 20171127
  Serious: No
  Sender: FDA-Public Use
  Company Number: US-JNJFOC-20170720455

PATIENT
  Sex: Female

DRUGS (3)
  1. XELJANZ [Concomitant]
     Active Substance: TOFACITINIB CITRATE
     Dosage: 8 MOS
     Route: 065
     Dates: start: 201706
  2. XELJANZ [Concomitant]
     Active Substance: TOFACITINIB CITRATE
     Route: 065
     Dates: end: 20170607
  3. REMICADE [Suspect]
     Active Substance: INFLIXIMAB
     Indication: PRODUCT USED FOR UNKNOWN INDICATION
     Route: 042
     Dates: start: 20170608

REACTIONS (10)
  - Hypertension [Unknown]
  - Dyspepsia [Unknown]
  - Nodule [Unknown]
  - Rotator cuff syndrome [Unknown]
  - Stress [Unknown]
  - Migraine [Recovering/Resolving]
  - Foot deformity [Unknown]
  - Metatarsalgia [Unknown]
  - Diarrhoea [Unknown]
  - Tenosynovitis [Unknown]

NARRATIVE: CASE EVENT DATE: 201706
